FAERS Safety Report 6279643-9 (Version None)
Quarter: 2009Q3

REPORT INFORMATION
  Report Type: 
  Country: None (occurrence: None)
  Receive Date: 20090721
  Receipt Date: 20090710
  Transmission Date: 20100115
  Serious: Yes (Life-Threatening, Other)
  Sender: FDA-Public Use
  Company Number: GXKR2009FR07956

PATIENT
  Age: 59 Year
  Sex: Female
  Weight: 52 kg

DRUGS (1)
  1. PRAVASTATIN SANDOZ         TABLET, 10MG [Suspect]
     Indication: DYSLIPIDAEMIA
     Dosage: 10 MG, QD, ORAL
     Route: 048
     Dates: start: 20090312, end: 20090427

REACTIONS (3)
  - ARTHRALGIA [None]
  - HAEMATOMA [None]
  - TENDONITIS [None]
